FAERS Safety Report 9124177 (Version 1)
Quarter: 2013Q1

REPORT INFORMATION
  Report Type: Spontaneous
  Country: US (occurrence: US)
  Receive Date: 20130227
  Receipt Date: 20130227
  Transmission Date: 20140127
  Serious: No
  Sender: FDA-Public Use
  Company Number: US-PFIZER INC-2013070487

PATIENT
  Age: 73 Year
  Sex: Male
  Weight: 72.11 kg

DRUGS (1)
  1. ATORVASTATIN CALCIUM [Suspect]
     Indication: BLOOD CHOLESTEROL INCREASED
     Dosage: 20 MG, 1X/DAY
     Route: 048
     Dates: start: 2012, end: 201302

REACTIONS (6)
  - Hypersensitivity [Unknown]
  - Pain in jaw [Unknown]
  - Pain [Unknown]
  - Hypokinesia [Unknown]
  - Erythema [Unknown]
  - Blood iron decreased [Unknown]
